FAERS Safety Report 4290089-5 (Version None)
Quarter: 2004Q1

REPORT INFORMATION
  Report Type: 
  Country: None (occurrence: None)
  Receive Date: 20040209
  Receipt Date: 20040123
  Transmission Date: 20041129
  Serious: Yes (Hospitalization)
  Sender: FDA-Public Use
  Company Number: 191281

PATIENT
  Age: 52 Year
  Sex: Female
  Weight: 63.5036 kg

DRUGS (5)
  1. AVONEX [Suspect]
     Indication: MULTIPLE SCLEROSIS
     Dosage: 30 MCG QW IM
     Route: 030
     Dates: start: 20011101
  2. NORVASC [Concomitant]
  3. ACCUPRIL [Concomitant]
  4. DIOVAN [Concomitant]
  5. NEPHRO-VITE RX [Concomitant]

REACTIONS (1)
  - CATHETER RELATED INFECTION [None]
